FAERS Safety Report 9055060 (Version 1)
Quarter: 2013Q1

REPORT INFORMATION
  Report Type: Spontaneous
  Country: FR (occurrence: FR)
  Receive Date: 20130206
  Receipt Date: 20130206
  Transmission Date: 20140127
  Serious: No
  Sender: FDA-Public Use
  Company Number: FR-JNJFOC-20121213470

PATIENT
  Age: 42 None
  Sex: Male
  Weight: 60 kg

DRUGS (6)
  1. DUROGESIC [Suspect]
     Indication: PAIN
     Route: 062
  2. DUROGESIC [Suspect]
     Indication: PAIN
     Route: 062
  3. DUROGESIC [Suspect]
     Indication: PAIN
     Route: 062
     Dates: start: 2008
  4. DOLIPRANE [Concomitant]
     Indication: PAIN
     Route: 048
  5. IBUPROFENE [Concomitant]
     Indication: PAIN
     Route: 048
  6. CRESTOR [Concomitant]
     Indication: BLOOD CHOLESTEROL
     Route: 048
     Dates: start: 2011

REACTIONS (3)
  - Product quality issue [Recovered/Resolved]
  - Drug ineffective [Recovered/Resolved]
  - Wrong technique in drug usage process [Unknown]
